FAERS Safety Report 17274816 (Version 1)
Quarter: 2020Q1

REPORT INFORMATION
  Report Type: Report from Study
  Country: None (occurrence: US)
  Receive Date: 20200115
  Receipt Date: 20200115
  Transmission Date: 20200409
  Serious: Yes (Hospitalization, Other)
  Sender: FDA-Public Use
  Company Number: US-ABBVIE-19K-163-2791105-00

PATIENT
  Age: 74 Year
  Sex: Female
  Weight: 61.29 kg

DRUGS (6)
  1. HUMIRA [Suspect]
     Active Substance: ADALIMUMAB
     Indication: RHEUMATOID ARTHRITIS
     Route: 058
     Dates: end: 201905
  2. SERTRALINE [Concomitant]
     Active Substance: SERTRALINE HYDROCHLORIDE
     Indication: DEPRESSION
  3. ATORVASTATIN [Concomitant]
     Active Substance: ATORVASTATIN
     Indication: BLOOD CHOLESTEROL INCREASED
  4. BUPROPION. [Concomitant]
     Active Substance: BUPROPION
     Indication: DEPRESSION
  5. SERTRALINE [Concomitant]
     Active Substance: SERTRALINE HYDROCHLORIDE
     Indication: ANXIETY
  6. BUPROPION. [Concomitant]
     Active Substance: BUPROPION
     Indication: ANXIETY

REACTIONS (21)
  - Bone disorder [Not Recovered/Not Resolved]
  - Hypophagia [Recovering/Resolving]
  - Carotid artery occlusion [Recovered/Resolved]
  - Arthralgia [Recovering/Resolving]
  - Fall [Recovered/Resolved]
  - Fall [Recovering/Resolving]
  - Impaired healing [Recovering/Resolving]
  - Hip surgery [Unknown]
  - Joint dislocation [Recovered/Resolved]
  - Hip arthroplasty [Unknown]
  - Joint dislocation [Not Recovered/Not Resolved]
  - Wrist fracture [Recovering/Resolving]
  - Back pain [Unknown]
  - Contusion [Not Recovered/Not Resolved]
  - Femur fracture [Recovered/Resolved]
  - Insomnia [Unknown]
  - Gastric infection [Recovering/Resolving]
  - Osteoarthritis [Not Recovered/Not Resolved]
  - Hip surgery [Unknown]
  - Balance disorder [Not Recovered/Not Resolved]
  - Pain in extremity [Unknown]

NARRATIVE: CASE EVENT DATE: 2018
